FAERS Safety Report 12479933 (Version 1)
Quarter: 2016Q2

REPORT INFORMATION
  Report Type: Spontaneous
  Country: US (occurrence: None)
  Receive Date: 20160617
  Receipt Date: 20160617
  Transmission Date: 20160815
  Serious: No
  Sender: FDA-Public Use
  Company Number: None

PATIENT
  Age: 58 Year
  Sex: Female

DRUGS (1)
  1. COPAXONE [Suspect]
     Active Substance: GLATIRAMER ACETATE
     Indication: MULTIPLE SCLEROSIS
     Route: 058
     Dates: start: 20150817

REACTIONS (5)
  - Multiple sclerosis [None]
  - Depression [None]
  - Memory impairment [None]
  - Injection site pain [None]
  - Drug dose omission [None]

NARRATIVE: CASE EVENT DATE: 201603
